FAERS Safety Report 23737457 (Version 1)
Quarter: 2024Q2

REPORT INFORMATION
  Report Type: Spontaneous
  Country: US (occurrence: US)
  Receive Date: 20240412
  Receipt Date: 20240412
  Transmission Date: 20240715
  Serious: Yes (Disabling)
  Sender: FDA-Public Use
  Company Number: US-SA-SAC20240409000074

PATIENT
  Sex: Male
  Weight: 91.61 kg

DRUGS (1)
  1. KEVZARA [Suspect]
     Active Substance: SARILUMAB
     Dosage: 200 MG, QOW
     Route: 058
     Dates: start: 20230104

REACTIONS (4)
  - Loss of personal independence in daily activities [Unknown]
  - Fatigue [Unknown]
  - Pain [Unknown]
  - Feeling cold [Unknown]
